FAERS Safety Report 15539844 (Version 1)
Quarter: 2018Q4

REPORT INFORMATION
  Report Type: Spontaneous
  Country: JP (occurrence: TH)
  Receive Date: 20181023
  Receipt Date: 20181023
  Transmission Date: 20190205
  Serious: Yes (Life-Threatening, Hospitalization, Other)
  Sender: FDA-Public Use
  Company Number: JP-ACCORD-073794

PATIENT
  Age: 56 Year
  Sex: Male
  Weight: 66.9 kg

DRUGS (6)
  1. METHOTREXATE. [Suspect]
     Active Substance: METHOTREXATE
     Indication: RHEUMATOID ARTHRITIS
     Dosage: DOSE INCREASED
     Dates: start: 200912
  2. INFLIXIMAB [Suspect]
     Active Substance: INFLIXIMAB
     Indication: RHEUMATOID ARTHRITIS
     Dosage: ALSO RECEIVED ON DEC-2009
     Dates: start: 201003, end: 20111211
  3. ISONIAZID/ISONIAZID CALCIUM PYRUVINATE/ISONIAZID SODIUM GLUCURONATE [Concomitant]
     Indication: ANTIBIOTIC PROPHYLAXIS
     Dates: start: 2009
  4. METHOTREXATE. [Suspect]
     Active Substance: METHOTREXATE
     Indication: RHEUMATOID ARTHRITIS
     Dates: start: 2009
  5. INFLIXIMAB [Suspect]
     Active Substance: INFLIXIMAB
     Indication: RHEUMATOID ARTHRITIS
     Dates: start: 200912
  6. METHOTREXATE. [Suspect]
     Active Substance: METHOTREXATE
     Indication: RHEUMATOID ARTHRITIS
     Dosage: ALSO RECEIVED IN 2009, DOSE UNKNOWN
     Dates: start: 201003

REACTIONS (1)
  - Penicillium infection [Recovered/Resolved]

NARRATIVE: CASE EVENT DATE: 201201
